FAERS Safety Report 8265672-2 (Version None)
Quarter: 2012Q2

REPORT INFORMATION
  Report Type: 
  Country: None (occurrence: None)
  Receive Date: 20120404
  Receipt Date: 20120327
  Transmission Date: 20120825
  Serious: Yes (Other)
  Sender: FDA-Public Use
  Company Number: 2012SP011377

PATIENT
  Sex: Male

DRUGS (4)
  1. RIBAVIRIN [Suspect]
     Indication: HEPATITIS C
     Dates: start: 20071102, end: 20081003
  2. RIBAVIRIN [Suspect]
     Indication: HEPATITIS C
     Dates: start: 20120228
  3. PEG-INTRON [Suspect]
     Indication: HEPATITIS C
     Dates: start: 20071102, end: 20081003
  4. PEG-INTRON [Suspect]
     Indication: HEPATITIS C
     Dates: start: 20120228

REACTIONS (3)
  - THYROID NEOPLASM [None]
  - GOITRE [None]
  - ANAEMIA [None]
